FAERS Safety Report 16817436 (Version 1)
Quarter: 2019Q3

REPORT INFORMATION
  Report Type: Spontaneous
  Country: US (occurrence: US)
  Receive Date: 20190917
  Receipt Date: 20190917
  Transmission Date: 20191005
  Serious: Yes (Other)
  Sender: FDA-Public Use
  Company Number: US-ASPEN-GLO2019US009878

PATIENT
  Age: 51 Year
  Sex: Male

DRUGS (7)
  1. PREDNISONE. [Suspect]
     Active Substance: PREDNISONE
     Indication: SYSTEMIC MASTOCYTOSIS
     Dosage: 60 MG
     Route: 065
  2. BUSULFAN. [Suspect]
     Active Substance: BUSULFAN
     Indication: BONE MARROW CONDITIONING REGIMEN
     Route: 065
  3. MIDOSTAURIN [Concomitant]
     Active Substance: MIDOSTAURIN
     Dosage: 50 MG, BID
     Route: 065
  4. 2-CDA [Suspect]
     Active Substance: CLADRIBINE
     Indication: SYSTEMIC MASTOCYTOSIS
     Route: 065
  5. BRENTUXIMAB VEDOTIN [Suspect]
     Active Substance: BRENTUXIMAB VEDOTIN
     Indication: SYSTEMIC MASTOCYTOSIS
     Dosage: 1.8 MG/KG
     Route: 065
  6. CYCLOPHOSPHAMIDE. [Suspect]
     Active Substance: CYCLOPHOSPHAMIDE
     Indication: BONE MARROW CONDITIONING REGIMEN
     Route: 065
  7. MIDOSTAURIN [Concomitant]
     Active Substance: MIDOSTAURIN
     Indication: DISEASE PROGRESSION
     Dosage: 25 MG, QD
     Route: 065

REACTIONS (3)
  - Cytomegalovirus infection [Unknown]
  - BK virus infection [Unknown]
  - Non-cirrhotic portal hypertension [Unknown]
